FAERS Safety Report 19603471 (Version 1)
Quarter: 2021Q3

REPORT INFORMATION
  Report Type: Other
  Country: US (occurrence: US)
  Receive Date: 20210723
  Receipt Date: 20210723
  Transmission Date: 20211014
  Serious: Yes (Other)
  Sender: FDA-Public Use
  Company Number: US-APOTEX-2021AP022672

PATIENT
  Age: 66 Year
  Sex: Male

DRUGS (2)
  1. RANITIDINE TABLETS [Suspect]
     Active Substance: RANITIDINE HYDROCHLORIDE
     Indication: DYSPEPSIA
     Dosage: OTHER (AT LEAST TWICE A WEEK, IF THAT DIDN^T WORK, TOOK A SECOND DOSAGE)
     Route: 065
     Dates: start: 199606, end: 201912
  2. ZANTAC [Suspect]
     Active Substance: RANITIDINE HYDROCHLORIDE
     Indication: DYSPEPSIA
     Dosage: OTHER (AT LEAST TWICE A WEEK, IF THAT DIDN^T WORK, TOOK A SECOND DOSAGE)
     Route: 065
     Dates: start: 199606, end: 201912

REACTIONS (2)
  - Lung neoplasm malignant [Unknown]
  - Prostate cancer [Not Recovered/Not Resolved]

NARRATIVE: CASE EVENT DATE: 20180401
